FAERS Safety Report 10274625 (Version 1)
Quarter: 2014Q3

REPORT INFORMATION
  Report Type: Spontaneous
  Country: IN (occurrence: IN)
  Receive Date: 20140702
  Receipt Date: 20140702
  Transmission Date: 20150326
  Serious: Yes (Death, Hospitalization)
  Sender: FDA-Public Use
  Company Number: PHHY2014IN080207

PATIENT
  Age: 41 Year
  Sex: Female

DRUGS (2)
  1. IMMUNOGLOBULIN G HUMAN [Suspect]
     Active Substance: HUMAN IMMUNOGLOBULIN G
     Indication: TOXIC EPIDERMAL NECROLYSIS
  2. DEXAMETHASONE. [Suspect]
     Active Substance: DEXAMETHASONE
     Indication: TOXIC EPIDERMAL NECROLYSIS
     Route: 042

REACTIONS (3)
  - Renal failure acute [Unknown]
  - Death [Fatal]
  - Drug ineffective [Unknown]
